FAERS Safety Report 7388982-X (Version None)
Quarter: 2011Q1

REPORT INFORMATION
  Report Type: 
  Country: None (occurrence: None)
  Receive Date: 20110329
  Receipt Date: 20110329
  Transmission Date: 20110831
  Serious: Yes (Hospitalization)
  Sender: FDA-Public Use
  Company Number: None

PATIENT
  Age: 62 Year
  Sex: Male
  Weight: 90 kg

DRUGS (2)
  1. IBUPROFEN [Suspect]
     Indication: PAIN
     Dosage: 1 TAB TID PO
     Route: 048
     Dates: start: 20100715, end: 20101001
  2. HYDROCHLOROTHIAZIDE [Suspect]
     Indication: HYPERTENSION
     Dosage: 1 TAB EVERY DAY PO
     Route: 048
     Dates: start: 20100517, end: 20101001

REACTIONS (4)
  - RENAL FAILURE ACUTE [None]
  - HYPERCALCAEMIA [None]
  - HYPONATRAEMIA [None]
  - HYPERKALAEMIA [None]
